FAERS Safety Report 12912000 (Version 1)
Quarter: 2016Q4

REPORT INFORMATION
  Report Type: Spontaneous
  Country: US (occurrence: US)
  Receive Date: 20161104
  Receipt Date: 20161104
  Transmission Date: 20170207
  Serious: No
  Sender: FDA-Public Use
  Company Number: US-TEVA-698064USA

PATIENT
  Age: 58 Year
  Sex: Female

DRUGS (1)
  1. ROSUVASTATIN. [Suspect]
     Active Substance: ROSUVASTATIN
     Dates: start: 20160720

REACTIONS (3)
  - Rash [Unknown]
  - Blister [Unknown]
  - Mood swings [Unknown]

NARRATIVE: CASE EVENT DATE: 201607
